FAERS Safety Report 20605799 (Version 2)
Quarter: 2022Q2

REPORT INFORMATION
  Report Type: Spontaneous
  Country: US (occurrence: None)
  Receive Date: 20220317
  Receipt Date: 20220408
  Transmission Date: 20220720
  Serious: Yes (Other)
  Sender: FDA-Public Use
  Company Number: US-ROCHE-3042102

PATIENT
  Sex: Female
  Weight: 58.112 kg

DRUGS (10)
  1. OCREVUS [Suspect]
     Active Substance: OCRELIZUMAB
     Indication: Relapsing-remitting multiple sclerosis
     Dosage: YES
     Route: 042
     Dates: start: 202003
  2. DALFAMPRIDINE [Concomitant]
     Active Substance: DALFAMPRIDINE
     Dosage: TAKING FOR 3 YEARS; STARTED PRIOR TO OCREVUS INITIATION ;ONGOING: YES
     Route: 048
  3. GABAPENTIN [Concomitant]
     Active Substance: GABAPENTIN
     Indication: Facial pain
     Dosage: STARTED IN FALL 2021. ;ONGOING: YES
     Route: 048
  4. LEVOXYL [Concomitant]
     Active Substance: LEVOTHYROXINE SODIUM
     Indication: Hypothyroidism
     Dosage: TAKING FOR ABOUT 20 YEARS ;ONGOING: YES
     Route: 048
  5. MELOXICAM [Concomitant]
     Active Substance: MELOXICAM
     Indication: Joint stiffness
     Dosage: STARTED JUST BEFORE OR RIGHT AROUND WHEN STARTING OCREVUS ;ONGOING: YES
     Route: 048
  6. VALTREX [Concomitant]
     Active Substance: VALACYCLOVIR HYDROCHLORIDE
     Dosage: YES
     Route: 048
     Dates: start: 202112
  7. LYSINE [Concomitant]
     Active Substance: LYSINE
     Dosage: STARTED IN FALL 2021 ;ONGOING: YES
     Route: 048
     Dates: start: 2021
  8. CANNABIS SATIVA SUBSP. INDICA TOP [Concomitant]
     Active Substance: CANNABIS SATIVA SUBSP. INDICA TOP
     Indication: Muscle spasticity
     Dosage: CBD VAPE ;ONGOING: YES
  9. VITAMIN D [Concomitant]
     Active Substance: VITAMIN D NOS
     Dosage: TAKING FOR ABOUT 5 YEARS
     Route: 048
  10. VITAMIN B [Concomitant]
     Active Substance: VITAMIN B
     Dosage: 2 DROPS; STARTED ABOUT 10 PLUS YEARS AGO
     Route: 048

REACTIONS (4)
  - Multiple sclerosis [Unknown]
  - Pain [Not Recovered/Not Resolved]
  - Gait disturbance [Not Recovered/Not Resolved]
  - Asthenia [Unknown]
